FAERS Safety Report 24356830 (Version 1)
Quarter: 2024Q3

REPORT INFORMATION
  Report Type: Spontaneous
  Country: SE (occurrence: SE)
  Receive Date: 20240924
  Receipt Date: 20240924
  Transmission Date: 20241017
  Serious: Yes (Other)
  Sender: HILL DERM
  Company Number: SE-Hill Dermaceuticals, Inc.-2161941

PATIENT
  Age: 75 Year
  Sex: Female

DRUGS (1)
  1. TOLAK [Suspect]
     Active Substance: FLUOROURACIL
     Indication: Product used for unknown indication

REACTIONS (1)
  - Purpura [Unknown]

NARRATIVE: CASE EVENT DATE: 20240101
